FAERS Safety Report 7727789-8 (Version None)
Quarter: 2011Q3

REPORT INFORMATION
  Report Type: 
  Country: None (occurrence: None)
  Receive Date: 20110905
  Receipt Date: 20110826
  Transmission Date: 20111222
  Serious: Yes (Death, Hospitalization, Other)
  Sender: FDA-Public Use
  Company Number: US-BRISTOL-MYERS SQUIBB COMPANY-16008112

PATIENT
  Age: 73 Year
  Sex: Female
  Weight: 51 kg

DRUGS (9)
  1. IMODIUM [Concomitant]
     Dosage: IMMODIUM AD
  2. QVAR 40 [Concomitant]
  3. ALBUTEROL SULFATE [Concomitant]
  4. MORPHINE [Concomitant]
  5. IPILIMUMAB [Suspect]
     Indication: MALIGNANT MELANOMA
     Dosage: 10MG/KG IV OVER 90MINS D1 Q12 WKS, LAST DOSE ON 27JUL2011
     Route: 042
     Dates: start: 20110608, end: 20110727
  6. ROPINIROLE [Concomitant]
     Dosage: ROPINIROLE HCL
  7. ZOLPIDEM TARTRATE [Concomitant]
  8. VENTOLIN HFA [Concomitant]
  9. SPIRIVA [Concomitant]
     Dosage: SPIRIVA HANDIHALER

REACTIONS (5)
  - CEREBROVASCULAR ACCIDENT [None]
  - HYPOTENSION [None]
  - RENAL FAILURE ACUTE [None]
  - CONFUSIONAL STATE [None]
  - RESPIRATORY FAILURE [None]
